FAERS Safety Report 8417899-4 (Version None)
Quarter: 2012Q2

REPORT INFORMATION
  Report Type: 
  Country: None (occurrence: None)
  Receive Date: 20120607
  Receipt Date: 20120604
  Transmission Date: 20120825
  Serious: No
  Sender: FDA-Public Use
  Company Number: US-PFIZER INC-2012134217

PATIENT
  Sex: Male
  Weight: 79.819 kg

DRUGS (1)
  1. LYRICA [Suspect]
     Indication: PAIN
     Dosage: 75 MG, 2X/DAY
     Route: 048
     Dates: start: 20120501

REACTIONS (4)
  - HUNGER [None]
  - DRUG EFFECT DECREASED [None]
  - PAIN [None]
  - WEIGHT INCREASED [None]
